FAERS Safety Report 5723177-4 (Version None)
Quarter: 2008Q2

REPORT INFORMATION
  Report Type: 
  Country: None (occurrence: None)
  Receive Date: 20080430
  Receipt Date: 20080421
  Transmission Date: 20081010
  Serious: Yes (Hospitalization)
  Sender: FDA-Public Use
  Company Number: FR-ELI_LILLY_AND_COMPANY-FR200804005720

PATIENT
  Age: 69 Year
  Sex: Female

DRUGS (1)
  1. FORTEO [Suspect]
     Indication: OSTEOPOROSIS
     Dosage: 20 UG, DAILY (1/D)
     Route: 058
     Dates: start: 20070312, end: 20080205

REACTIONS (5)
  - ASTHENIA [None]
  - CORONARY ARTERY INSUFFICIENCY [None]
  - ORAL FUNGAL INFECTION [None]
  - STAPHYLOCOCCAL INFECTION [None]
  - TACHYCARDIA [None]
